FAERS Safety Report 16162418 (Version 4)
Quarter: 2019Q3

REPORT INFORMATION
  Report Type: Spontaneous
  Country: US (occurrence: US)
  Receive Date: 20190405
  Receipt Date: 20190905
  Transmission Date: 20191004
  Serious: Yes (Life-Threatening, Hospitalization, Other)
  Sender: FDA-Public Use
  Company Number: US-DRREDDYS-USA/USA/19/0109272

PATIENT
  Age: 51 Year
  Sex: Male
  Weight: 112 kg

DRUGS (6)
  1. DEXAMETHASONE. [Concomitant]
     Active Substance: DEXAMETHASONE
     Indication: PREMEDICATION
     Dosage: GIVEN AT 15:10
  2. GANCICLOVIR. [Concomitant]
     Active Substance: GANCICLOVIR
     Indication: EPSTEIN-BARR VIRAEMIA
     Route: 042
  3. DOXORUBICIN HYDROCHLORIDE LIPOSOME INJECTION 20 MG/10 ML (2 MG/ML) AND [Suspect]
     Active Substance: DOXORUBICIN HYDROCHLORIDE
     Indication: HODGKIN^S DISEASE
     Dosage: INFUSION
  4. DACARBAZINE. [Suspect]
     Active Substance: DACARBAZINE
     Indication: HODGKIN^S DISEASE
     Dosage: STANDARD DOSE, INFUSION
  5. BLEOMYCIN [Suspect]
     Active Substance: BLEOMYCIN SULFATE
     Indication: HODGKIN^S DISEASE
     Dosage: STANDARD DOSE; INFUSION WAS COMPLETED AT 16:10
  6. VINBLASTINE [Suspect]
     Active Substance: VINBLASTINE
     Indication: HODGKIN^S DISEASE
     Dosage: STANDARD DOSE

REACTIONS (9)
  - Blood creatine phosphokinase increased [Recovered/Resolved]
  - Respiratory failure [Recovered/Resolved]
  - Blood lactic acid increased [Recovered/Resolved]
  - Chills [Recovered/Resolved]
  - Hypotension [Recovered/Resolved]
  - Pyrexia [Recovered/Resolved]
  - Tachycardia [Recovered/Resolved]
  - Encephalopathy [Recovered/Resolved]
  - Blood bilirubin increased [Recovered/Resolved]
